FAERS Safety Report 16576996 (Version 2)
Quarter: 2020Q1

REPORT INFORMATION
  Report Type: Spontaneous
  Country: FR (occurrence: FR)
  Receive Date: 20190716
  Receipt Date: 20200205
  Transmission Date: 20200409
  Serious: Yes (Hospitalization)
  Sender: FDA-Public Use
  Company Number: PHHY2019FR159490

PATIENT
  Age: 60 Year
  Sex: Female
  Weight: 63 kg

DRUGS (3)
  1. CARBOPLATINE [Suspect]
     Active Substance: CARBOPLATIN
     Indication: OVARIAN CANCER
     Dosage: 485 MG, UNK (6 CURES)
     Route: 041
     Dates: start: 20190121, end: 20190523
  2. AVASTIN [Suspect]
     Active Substance: BEVACIZUMAB
     Indication: OVARIAN CANCER
     Dosage: 945 MG, UNK (6 CURES)
     Route: 042
     Dates: start: 20190121, end: 20190523
  3. PACLITAXEL. [Suspect]
     Active Substance: PACLITAXEL
     Indication: OVARIAN CANCER
     Dosage: 287 MG, UNK (6 CURES)
     Route: 041
     Dates: start: 20190121, end: 20190523

REACTIONS (3)
  - Subarachnoid haemorrhage [Recovering/Resolving]
  - Cerebral haematoma [Recovering/Resolving]
  - Hypertension [Recovered/Resolved]

NARRATIVE: CASE EVENT DATE: 201902
